FAERS Safety Report 16567935 (Version 2)
Quarter: 2019Q3

REPORT INFORMATION
  Report Type: Report from Study
  Country: US (occurrence: US)
  Receive Date: 20190712
  Receipt Date: 20190805
  Transmission Date: 20191004
  Serious: Yes (Hospitalization, Other)
  Sender: FDA-Public Use
  Company Number: US-BRISTOL-MYERS SQUIBB COMPANY-BMS-2019-066230

PATIENT
  Age: 70 Year
  Sex: Female

DRUGS (15)
  1. ACETAMINOPHEN. [Concomitant]
     Active Substance: ACETAMINOPHEN
     Indication: PAIN
     Dosage: UNK
     Route: 065
     Dates: start: 20190620
  2. LORAZEPAM. [Concomitant]
     Active Substance: LORAZEPAM
     Indication: ANXIETY
     Dosage: UNK
     Route: 065
     Dates: start: 20170825
  3. SENNA [SENNA ALEXANDRINA] [Concomitant]
     Active Substance: SENNA LEAF
     Indication: CONSTIPATION
     Dosage: 8.6 MILLIGRAM, BID
     Route: 048
     Dates: start: 20190226
  4. NKTR-214 [Suspect]
     Active Substance: BEMPEGALDESLEUKIN
     Indication: TRIPLE NEGATIVE BREAST CANCER
     Dosage: 0.006 MILLIGRAM/KILOGRAM, Q3WK
     Route: 042
     Dates: start: 20190221
  5. ZOFRAN [Concomitant]
     Active Substance: ONDANSETRON HYDROCHLORIDE
     Indication: INFLUENZA LIKE ILLNESS
     Dosage: 8 MILLIGRAM, Q8H
     Route: 065
     Dates: start: 20190226
  6. NIVOLUMAB [Suspect]
     Active Substance: NIVOLUMAB
     Indication: TRIPLE NEGATIVE BREAST CANCER
     Dosage: 360 MILLIGRAM, Q3WK
     Route: 042
     Dates: start: 20190221
  7. ZOFRAN [Concomitant]
     Active Substance: ONDANSETRON HYDROCHLORIDE
     Indication: VOMITING
     Route: 065
  8. DENOSUMAB [Concomitant]
     Active Substance: DENOSUMAB
     Indication: METASTASES TO BONE
     Dosage: UNK
     Route: 065
     Dates: start: 20180807
  9. OXYCODONE [Concomitant]
     Active Substance: OXYCODONE
     Indication: PAIN
     Dosage: 10 MILLIGRAM, Q6H
     Route: 065
     Dates: start: 20190602
  10. ZOFRAN [Concomitant]
     Active Substance: ONDANSETRON HYDROCHLORIDE
     Indication: NAUSEA
     Route: 065
  11. COMPAZINE [PROCHLORPERAZINE EDISYLATE] [Concomitant]
     Active Substance: PROCHLORPERAZINE EDISYLATE
     Indication: INFLUENZA LIKE ILLNESS
     Dosage: UNK
     Route: 065
     Dates: start: 20190502
  12. COMPAZINE [PROCHLORPERAZINE EDISYLATE] [Concomitant]
     Active Substance: PROCHLORPERAZINE EDISYLATE
     Indication: VOMITING
     Route: 065
  13. MS CONTIN [Concomitant]
     Active Substance: MORPHINE SULFATE
     Indication: PAIN
     Dosage: 30 MILLIGRAM, Q12H
     Route: 048
     Dates: start: 201907
  14. HALOPERIDOL. [Concomitant]
     Active Substance: HALOPERIDOL
     Indication: PAIN
     Dosage: UNK
     Route: 065
     Dates: start: 20190602
  15. COMPAZINE [PROCHLORPERAZINE EDISYLATE] [Concomitant]
     Active Substance: PROCHLORPERAZINE EDISYLATE
     Indication: NAUSEA
     Route: 065

REACTIONS (3)
  - Acute kidney injury [Recovered/Resolved]
  - Dehydration [Not Recovered/Not Resolved]
  - Fatigue [Not Recovered/Not Resolved]

NARRATIVE: CASE EVENT DATE: 20190703
